FAERS Safety Report 9022257 (Version 1)
Quarter: 2013Q1

REPORT INFORMATION
  Report Type: Spontaneous
  Country: US (occurrence: US)
  Receive Date: 20130118
  Receipt Date: 20130118
  Transmission Date: 20140127
  Serious: Yes (Hospitalization)
  Sender: FDA-Public Use
  Company Number: PHEH2013US001349

PATIENT
  Age: 72 None
  Sex: Male

DRUGS (1)
  1. ZOMETA [Suspect]
     Dosage: UNK UKN, ( EVERY 3 WEEKS)
     Route: 042
     Dates: start: 20120612

REACTIONS (2)
  - Influenza [Unknown]
  - Pneumonia [Unknown]
